FAERS Safety Report 7021118-3 (Version None)
Quarter: 2010Q3

REPORT INFORMATION
  Report Type: 
  Country: None (occurrence: None)
  Receive Date: 20100929
  Receipt Date: 20100923
  Transmission Date: 20110219
  Serious: Yes (Hospitalization)
  Sender: FDA-Public Use
  Company Number: PHHY2010IT63029

PATIENT
  Sex: Male

DRUGS (1)
  1. GLEEVEC [Suspect]
     Indication: CHRONIC MYELOID LEUKAEMIA
     Dosage: 100 MG, 4 POSOLOGIC UNIT
     Route: 048
     Dates: start: 20070101, end: 20100701

REACTIONS (6)
  - ASCITES [None]
  - ASTHENIA [None]
  - GENERALISED OEDEMA [None]
  - PAIN [None]
  - PERITONITIS BACTERIAL [None]
  - WEIGHT INCREASED [None]
